FAERS Safety Report 16366745 (Version 1)
Quarter: 2019Q2

REPORT INFORMATION
  Report Type: Spontaneous
  Country: US (occurrence: US)
  Receive Date: 20190529
  Receipt Date: 20190529
  Transmission Date: 20190711
  Serious: Yes (Hospitalization)
  Sender: FDA-Public Use
  Company Number: US-PERRIGO-19US006249

PATIENT
  Sex: Female

DRUGS (1)
  1. LOPERAMIDE HYDROCHLORIDE. [Suspect]
     Active Substance: LOPERAMIDE HYDROCHLORIDE
     Indication: PAIN
     Dosage: 144 MG, QD
     Route: 048

REACTIONS (7)
  - Withdrawal syndrome [Unknown]
  - Cardiac arrest [Recovered/Resolved]
  - Product use in unapproved indication [Recovered/Resolved]
  - Electrocardiogram QT prolonged [Unknown]
  - Seizure like phenomena [Unknown]
  - Electrocardiogram QRS complex prolonged [Unknown]
  - Overdose [Recovered/Resolved]
